FAERS Safety Report 21978729 (Version 1)
Quarter: 2023Q1

REPORT INFORMATION
  Report Type: Spontaneous
  Country: US (occurrence: None)
  Receive Date: 20230208
  Receipt Date: 20230208
  Transmission Date: 20230417
  Serious: Yes (Death)
  Sender: FDA-Public Use
  Company Number: None

PATIENT
  Age: 55 Year
  Sex: Male

DRUGS (3)
  1. ENVARSUS XR [Suspect]
     Active Substance: TACROLIMUS
     Indication: Organ transplant
     Dosage: 1 MG TAB QD PO?
     Route: 048
     Dates: start: 20191231
  2. AMLODIPINE [Concomitant]
     Active Substance: AMLODIPINE BESYLATE
  3. BESYLATE [Concomitant]

REACTIONS (1)
  - Death [None]

NARRATIVE: CASE EVENT DATE: 20230202
